FAERS Safety Report 8543603-5 (Version None)
Quarter: 2012Q3

REPORT INFORMATION
  Report Type: 
  Country: None (occurrence: None)
  Receive Date: 20120727
  Receipt Date: 20120713
  Transmission Date: 20120928
  Serious: Yes (Death, Hospitalization)
  Sender: FDA-Public Use
  Company Number: PL-MYLANLABS-2012S1014702

PATIENT
  Age: 17 Year
  Sex: Male

DRUGS (4)
  1. IFOSFAMIDE [Suspect]
     Indication: EWING'S SARCOMA METASTATIC
     Route: 065
  2. ETOPOSIDE [Suspect]
     Indication: EWING'S SARCOMA METASTATIC
     Route: 065
  3. VINCRISTINE [Suspect]
     Indication: EWING'S SARCOMA METASTATIC
     Route: 065
  4. DOXORUBICIN HYDROCHLORIDE [Suspect]
     Indication: EWING'S SARCOMA
     Route: 065

REACTIONS (7)
  - RENAL FAILURE [None]
  - NEUTROPENIA [None]
  - DISSEMINATED INTRAVASCULAR COAGULATION [None]
  - SEPTIC SHOCK [None]
  - CLOSTRIDIAL INFECTION [None]
  - RHABDOMYOLYSIS [None]
  - PANCYTOPENIA [None]
